FAERS Safety Report 6806680-5 (Version None)
Quarter: 2010Q2

REPORT INFORMATION
  Report Type: 
  Country: None (occurrence: None)
  Receive Date: 20100629
  Receipt Date: 20080409
  Transmission Date: 20101027
  Serious: No
  Sender: FDA-Public Use
  Company Number: US-PFIZER INC-2008032103

PATIENT
  Sex: Male
  Weight: 104.33 kg

DRUGS (11)
  1. ZYVOX [Suspect]
     Indication: WOUND INFECTION
     Route: 048
     Dates: start: 20080328, end: 20080404
  2. DEXAMETHASONE [Concomitant]
  3. BACTRIM [Concomitant]
  4. TRICOR [Concomitant]
  5. VYTORIN [Concomitant]
  6. TARGRETIN [Concomitant]
  7. OMEGA-3 MARINE TRIGLYCERIDES [Concomitant]
  8. CENTRUM [Concomitant]
  9. VITAMIN B6 [Concomitant]
  10. GEMFIBROZIL [Concomitant]
  11. VITAMINS [Concomitant]

REACTIONS (3)
  - AGEUSIA [None]
  - DYSGEUSIA [None]
  - DYSPHAGIA [None]
